FAERS Safety Report 5283080-3 (Version None)
Quarter: 2007Q1

REPORT INFORMATION
  Report Type: 
  Country: None (occurrence: None)
  Receive Date: 20070328
  Receipt Date: 20070328
  Transmission Date: 20070707
  Serious: Yes (Hospitalization)
  Sender: FDA-Public Use
  Company Number: None

PATIENT
  Age: 74 Year
  Sex: Male
  Weight: 123.3784 kg

DRUGS (8)
  1. WARFARIN SODIUM [Suspect]
     Indication: ATRIAL FIBRILLATION
     Dosage: 10 MG DAILY PO
     Route: 048
     Dates: start: 20060701, end: 20070315
  2. ATENOLOL [Concomitant]
  3. CYANOCOBALAMIN [Concomitant]
  4. FUROSEMIDE [Concomitant]
  5. GLYBURIDE [Concomitant]
  6. LISINOPRIL [Concomitant]
  7. ROSIGLITAZONE [Concomitant]
  8. SIMVASTATIN [Concomitant]

REACTIONS (6)
  - BLOOD URINE PRESENT [None]
  - DRUG TOXICITY [None]
  - DYSPHASIA [None]
  - HAEMATURIA [None]
  - MEMORY IMPAIRMENT [None]
  - TREATMENT NONCOMPLIANCE [None]
